FAERS Safety Report 6569493-8 (Version None)
Quarter: 2010Q1

REPORT INFORMATION
  Report Type: 
  Country: None (occurrence: None)
  Receive Date: 20100204
  Receipt Date: 20100126
  Transmission Date: 20100710
  Serious: Yes (Life-Threatening, Hospitalization)
  Sender: FDA-Public Use
  Company Number: JP-BAYER-200914712BYL

PATIENT
  Age: 69 Year
  Sex: Female
  Weight: 70 kg

DRUGS (6)
  1. NEXAVAR [Suspect]
     Indication: HEPATIC NEOPLASM MALIGNANT
     Dosage: TOTAL DAILY DOSE: 800 MG  UNIT DOSE: 200 MG
     Route: 048
     Dates: start: 20091117, end: 20091130
  2. AMLODIPINE OD [Concomitant]
     Indication: HYPERTENSION
     Dosage: UNIT DOSE: 5 MG
     Route: 048
  3. BLOPRESS [Concomitant]
     Indication: HYPERTENSION
     Dosage: UNIT DOSE: 8 MG
     Route: 048
  4. FLUITRAN [Concomitant]
     Indication: HYPERTENSION
     Dosage: UNIT DOSE: 2 MG
     Route: 048
  5. OMEPRAL [Concomitant]
     Indication: REFLUX OESOPHAGITIS
     Dosage: UNIT DOSE: 20 MG
     Route: 048
  6. BARACLUDE [Concomitant]
     Indication: HEPATIC CIRRHOSIS
     Dosage: UNIT DOSE: 0.5 MG
     Route: 048

REACTIONS (4)
  - BLOOD ALBUMIN DECREASED [None]
  - ERYTHEMA MULTIFORME [None]
  - HEPATIC FAILURE [None]
  - HYPOTHYROIDISM [None]
